FAERS Safety Report 6752866-8 (Version None)
Quarter: 2010Q2

REPORT INFORMATION
  Report Type: 
  Country: None (occurrence: None)
  Receive Date: 20100603
  Receipt Date: 20100524
  Transmission Date: 20101027
  Serious: No
  Sender: FDA-Public Use
  Company Number: US-BIOGENIDEC-2010BI017021

PATIENT
  Age: 50 Year
  Sex: Male

DRUGS (6)
  1. AVONEX [Suspect]
     Indication: MULTIPLE SCLEROSIS
     Route: 030
     Dates: start: 20100514
  2. DEMADEX [Concomitant]
     Indication: CARDIAC FAILURE CONGESTIVE
  3. GABAPENTIN [Concomitant]
     Indication: BACK PAIN
     Route: 048
  4. GABAPENTIN [Concomitant]
     Indication: PAIN
     Route: 048
  5. LORTAB [Concomitant]
     Indication: BACK PAIN
  6. LORTAB [Concomitant]
     Indication: PAIN

REACTIONS (3)
  - FLUID RETENTION [None]
  - INFLUENZA LIKE ILLNESS [None]
  - URINE OUTPUT DECREASED [None]
